FAERS Safety Report 6886137-6 (Version None)
Quarter: 2010Q3

REPORT INFORMATION
  Report Type: 
  Country: None (occurrence: None)
  Receive Date: 20100729
  Receipt Date: 20080402
  Transmission Date: 20110219
  Serious: No
  Sender: FDA-Public Use
  Company Number: US-PFIZER INC-2008029075

PATIENT
  Sex: Female
  Weight: 88.636 kg

DRUGS (3)
  1. CELEBREX [Suspect]
     Indication: TARSAL TUNNEL SYNDROME
     Dates: start: 20071101, end: 20080401
  2. CARDIZEM [Concomitant]
     Indication: HYPERTENSION
  3. VIVELLE [Concomitant]
     Indication: HORMONE LEVEL ABNORMAL

REACTIONS (1)
  - DIZZINESS [None]
